FAERS Safety Report 16375623 (Version 1)
Quarter: 2019Q2

REPORT INFORMATION
  Report Type: Spontaneous
  Country: NL (occurrence: NL)
  Receive Date: 20190531
  Receipt Date: 20190531
  Transmission Date: 20190711
  Serious: Yes (Other)
  Sender: FDA-Public Use
  Company Number: NL-AUROBINDO-AUR-APL-2019-030064

PATIENT

DRUGS (2)
  1. METHYLPHENIDATE HYDROCHLORIDE. [Concomitant]
     Active Substance: METHYLPHENIDATE HYDROCHLORIDE
     Indication: PRODUCT USED FOR UNKNOWN INDICATION
     Route: 065
  2. LAMOTRIGINE DISPERSIBLE TABLETS 100MG [Suspect]
     Active Substance: LAMOTRIGINE
     Indication: BIPOLAR DISORDER
     Dosage: 1 X PER DAG 1 STUKS
     Route: 048

REACTIONS (3)
  - Memory impairment [Recovered/Resolved]
  - Aphasia [Recovered/Resolved]
  - Depressed level of consciousness [Recovered/Resolved]
